FAERS Safety Report 21033556 (Version 1)
Quarter: 2022Q3

REPORT INFORMATION
  Report Type: Spontaneous
  Country: QA (occurrence: QA)
  Receive Date: 20220701
  Receipt Date: 20220701
  Transmission Date: 20221027
  Serious: Yes (Other)
  Sender: FDA-Public Use
  Company Number: QA-SUN PHARMACEUTICAL INDUSTRIES LTD-2022RR-342903

PATIENT
  Age: 28 Year
  Sex: Male

DRUGS (4)
  1. OXALIPLATIN [Suspect]
     Active Substance: OXALIPLATIN
     Indication: Hepatocellular carcinoma
     Dosage: UNK
     Route: 065
     Dates: start: 201909
  2. LEUCOVORIN CALCIUM [Suspect]
     Active Substance: LEUCOVORIN CALCIUM
     Indication: Hepatocellular carcinoma
     Dosage: UNK
     Route: 065
     Dates: start: 201909
  3. GEMCITABINE [Suspect]
     Active Substance: GEMCITABINE
     Indication: Hepatocellular carcinoma
     Dosage: UNK
     Route: 065
  4. FLUOROURACIL [Suspect]
     Active Substance: FLUOROURACIL
     Indication: Hepatocellular carcinoma
     Dosage: UNK
     Route: 065
     Dates: start: 201909

REACTIONS (7)
  - Agitation [Unknown]
  - Encephalopathy [Unknown]
  - Ammonia increased [Unknown]
  - Disease progression [Unknown]
  - Fatigue [Unknown]
  - Confusional state [Unknown]
  - Vomiting [Unknown]
